FAERS Safety Report 6648043-1 (Version None)
Quarter: 2010Q1

REPORT INFORMATION
  Report Type: 
  Country: None (occurrence: None)
  Receive Date: 20100324
  Receipt Date: 20100311
  Transmission Date: 20100710
  Serious: Yes (Hospitalization, Other)
  Sender: FDA-Public Use
  Company Number: PHHY2010JP07917

PATIENT
  Age: 86 Year
  Sex: Female

DRUGS (2)
  1. VOLTAREN [Suspect]
     Dosage: 50 MG
     Route: 054
     Dates: start: 20100130
  2. CALCITONIN [Concomitant]
     Route: 030

REACTIONS (6)
  - ALTERED STATE OF CONSCIOUSNESS [None]
  - CONFUSIONAL STATE [None]
  - DRUG INEFFECTIVE [None]
  - HYPONATRAEMIA [None]
  - POLLAKIURIA [None]
  - SPINAL COMPRESSION FRACTURE [None]
